FAERS Safety Report 13772001 (Version 1)
Quarter: 2017Q3

REPORT INFORMATION
  Report Type: Spontaneous
  Country: US (occurrence: US)
  Receive Date: 20170720
  Receipt Date: 20170720
  Transmission Date: 20171127
  Serious: Yes (Other)
  Sender: FDA-Public Use
  Company Number: PHEH2017US021267

PATIENT
  Sex: Female

DRUGS (3)
  1. IBRANCE [Suspect]
     Active Substance: PALBOCICLIB
     Dosage: 100 MG, UNK
     Route: 065
  2. LETROZOLE. [Suspect]
     Active Substance: LETROZOLE
     Indication: PRODUCT USED FOR UNKNOWN INDICATION
     Dosage: UNK
     Route: 065
  3. IBRANCE [Suspect]
     Active Substance: PALBOCICLIB
     Indication: PRODUCT USED FOR UNKNOWN INDICATION
     Dosage: 125 MG, QD
     Route: 065
     Dates: start: 20160318

REACTIONS (14)
  - Paraesthesia [Unknown]
  - Fatigue [Unknown]
  - Weight increased [Unknown]
  - Sleep disorder [Unknown]
  - Hot flush [Unknown]
  - Asthenia [Unknown]
  - Blood creatinine increased [Unknown]
  - Chapped lips [Unknown]
  - Alopecia [Unknown]
  - Nausea [Unknown]
  - Lymphoedema [Unknown]
  - Red blood cell count decreased [Unknown]
  - Cellulitis [Unknown]
  - White blood cell count decreased [Unknown]
